FAERS Safety Report 13417872 (Version 2)
Quarter: 2017Q2

REPORT INFORMATION
  Report Type: Spontaneous
  Country: US (occurrence: US)
  Receive Date: 20170407
  Receipt Date: 20170510
  Transmission Date: 20170830
  Serious: Yes (Other)
  Sender: FDA-Public Use
  Company Number: US-SUNOVION-2017SUN001468

PATIENT
  Age: 26 Year
  Sex: Male
  Weight: 77.55 kg

DRUGS (5)
  1. ACCUTANE [Concomitant]
     Active Substance: ISOTRETINOIN
     Dosage: 40 MG, BID
  2. LATUDA [Suspect]
     Active Substance: LURASIDONE HYDROCHLORIDE
     Indication: ANXIETY
     Dosage: 40 MG, QD
     Route: 048
     Dates: start: 20170320, end: 20170321
  3. BUSPAR [Concomitant]
     Active Substance: BUSPIRONE HYDROCHLORIDE
  4. LATUDA [Suspect]
     Active Substance: LURASIDONE HYDROCHLORIDE
     Indication: AGITATION
     Dosage: 20 MG, QD
     Route: 048
     Dates: start: 20170320, end: 20170321
  5. KLONOPIN [Concomitant]
     Active Substance: CLONAZEPAM
     Dosage: 1 MG, TID
     Route: 048

REACTIONS (14)
  - Throat tightness [Recovered/Resolved]
  - Swollen tongue [Recovered/Resolved]
  - Muscle spasms [Unknown]
  - Pain in jaw [Unknown]
  - Muscle tightness [Unknown]
  - Dystonia [Unknown]
  - Neck pain [Unknown]
  - Bruxism [Unknown]
  - Agitation [Unknown]
  - Off label use [Unknown]
  - Dysarthria [Unknown]
  - Joint stiffness [Unknown]
  - Tongue movement disturbance [Unknown]
  - Pharyngeal oedema [Recovered/Resolved]

NARRATIVE: CASE EVENT DATE: 20170320
